FAERS Safety Report 8143325-9 (Version None)
Quarter: 2012Q1

REPORT INFORMATION
  Report Type: 
  Country: None (occurrence: None)
  Receive Date: 20120217
  Receipt Date: 20120214
  Transmission Date: 20120608
  Serious: Yes (Death)
  Sender: FDA-Public Use
  Company Number: IN-PFIZER INC-2012027579

PATIENT
  Age: 55 Year
  Sex: Male

DRUGS (1)
  1. SUTENT [Suspect]
     Indication: METASTATIC RENAL CELL CARCINOMA
     Dosage: 25 MG, 1X/DAY
     Route: 048
     Dates: start: 20111229

REACTIONS (8)
  - DEATH [None]
  - PRURITUS [None]
  - PAIN [None]
  - RENAL PAIN [None]
  - VOMITING [None]
  - LOGORRHOEA [None]
  - DIARRHOEA [None]
  - HYPERHIDROSIS [None]
